FAERS Safety Report 4496935-4 (Version None)
Quarter: 2004Q4

REPORT INFORMATION
  Report Type: 
  Country: None (occurrence: None)
  Receive Date: 20041109
  Receipt Date: 20041026
  Transmission Date: 20050328
  Serious: Yes (Life-Threatening, Hospitalization, Disabling)
  Sender: FDA-Public Use
  Company Number: US-MERCK-0410USA03946

PATIENT
  Age: 71 Year
  Sex: Male

DRUGS (14)
  1. VIOXX [Suspect]
     Route: 048
     Dates: start: 20030326, end: 20030731
  2. PROTONIX [Concomitant]
     Route: 065
  3. RITE AID COL-RITE STOOL SOFTENER [Concomitant]
     Route: 065
  4. CLONIDINE [Concomitant]
     Route: 065
  5. DIOVAN [Concomitant]
     Route: 065
  6. NORVASC [Concomitant]
     Route: 065
  7. HYDRODIURIL [Concomitant]
     Route: 065
  8. WELLBUTRIN SR [Concomitant]
     Route: 065
  9. COMBIVENT [Concomitant]
     Route: 065
  10. ADVAIR [Concomitant]
     Route: 065
  11. THEOPHYLLINE [Concomitant]
     Route: 065
  12. ASPIRIN [Concomitant]
     Route: 065
  13. BISACODYL [Concomitant]
     Route: 065
  14. METOCLOPRAMIDE [Concomitant]
     Route: 065

REACTIONS (5)
  - CEREBROVASCULAR ACCIDENT [None]
  - CONVULSION [None]
  - MYOCARDIAL INFARCTION [None]
  - RENAL DISORDER [None]
  - TRANSIENT ISCHAEMIC ATTACK [None]
